FAERS Safety Report 15668243 (Version 1)
Quarter: 2018Q4

REPORT INFORMATION
  Report Type: Spontaneous
  Country: FR (occurrence: FR)
  Receive Date: 20181129
  Receipt Date: 20181129
  Transmission Date: 20190205
  Serious: Yes (Life-Threatening)
  Sender: FDA-Public Use
  Company Number: FR-ACCORD-094002

PATIENT
  Age: 71 Year
  Sex: Male
  Weight: 82 kg

DRUGS (1)
  1. SERTRALINE [Suspect]
     Active Substance: SERTRALINE HYDROCHLORIDE
     Indication: MAJOR DEPRESSION
     Route: 048
     Dates: end: 201612

REACTIONS (4)
  - Anaemia [Recovered/Resolved]
  - Epistaxis [Recovered/Resolved]
  - Platelet function test abnormal [Recovered/Resolved]
  - Platelet aggregation abnormal [Recovered/Resolved]

NARRATIVE: CASE EVENT DATE: 20151201
